FAERS Safety Report 14365674 (Version 5)
Quarter: 2018Q1

REPORT INFORMATION
  Report Type: Report from Study
  Country: US (occurrence: US)
  Receive Date: 20180109
  Receipt Date: 20180303
  Transmission Date: 20180509
  Serious: Yes (Other)
  Sender: FDA-Public Use
  Company Number: PHEH2018US000830

PATIENT
  Age: 69 Year
  Sex: Male

DRUGS (1)
  1. GILENYA [Suspect]
     Active Substance: FINGOLIMOD HYDROCHLORIDE
     Indication: MULTIPLE SCLEROSIS
     Dosage: 0.5 MG, QD
     Route: 048
     Dates: start: 20171221, end: 20180103

REACTIONS (8)
  - Macular oedema [Unknown]
  - Paraesthesia [Unknown]
  - Hypokinesia [Unknown]
  - Muscular weakness [Unknown]
  - Presbyopia [Unknown]
  - Gait disturbance [Unknown]
  - Visual impairment [Recovering/Resolving]
  - Vision blurred [Unknown]

NARRATIVE: CASE EVENT DATE: 20180103
